FAERS Safety Report 9409638 (Version 1)
Quarter: 2013Q3

REPORT INFORMATION
  Report Type: Report from Study
  Country: MX (occurrence: MX)
  Receive Date: 20130719
  Receipt Date: 20130719
  Transmission Date: 20140515
  Serious: Yes (Other)
  Sender: FDA-Public Use
  Company Number: PHHY2013MX076155

PATIENT
  Age: 62 Year
  Sex: Female

DRUGS (4)
  1. TRILEPTAL [Suspect]
     Indication: DIABETIC NEUROPATHY
     Dosage: 300 MG, DAILY (1.5 TABLET: HALF TABLET IN THE MORNING AND 1 TABLET AT NIGHT)
     Route: 048
     Dates: start: 201307
  2. DIOVAN [Suspect]
     Indication: HYPERTENSION
     Dosage: 1 DF, DAILY
     Dates: start: 2008
  3. BUFLOMEDIL [Concomitant]
     Indication: OXYGEN SUPPLEMENTATION
     Dosage: 2 DF, DAILY
     Dates: start: 201306
  4. METOCLOPRAMIDE [Concomitant]
     Dosage: 1 DF, DAILY
     Dates: start: 201307

REACTIONS (9)
  - Diabetes mellitus [Not Recovered/Not Resolved]
  - Blood glucose increased [Not Recovered/Not Resolved]
  - Diabetic neuropathy [Not Recovered/Not Resolved]
  - Onychalgia [Not Recovered/Not Resolved]
  - Pain in extremity [Not Recovered/Not Resolved]
  - Burning feet syndrome [Not Recovered/Not Resolved]
  - Central nervous system inflammation [Not Recovered/Not Resolved]
  - Hypertension [Not Recovered/Not Resolved]
  - Colitis [Not Recovered/Not Resolved]
